FAERS Safety Report 9424019 (Version 3)
Quarter: 2014Q3

REPORT INFORMATION
  Report Type: Report from Study
  Country: JP (occurrence: JP)
  Receive Date: 20130729
  Receipt Date: 20140711
  Transmission Date: 20150326
  Serious: Yes (Death, Disabling, Other)
  Sender: FDA-Public Use
  Company Number: JP-009507513-1307JPN015385

PATIENT
  Age: 45 Year
  Sex: Male

DRUGS (4)
  1. NORVIR [Concomitant]
     Active Substance: RITONAVIR
     Indication: HIV INFECTION
     Dosage: 100 MG, DAILY
     Route: 048
     Dates: start: 20110908, end: 20120907
  2. TRUVADA [Concomitant]
     Active Substance: EMTRICITABINE\TENOFOVIR DISOPROXIL FUMARATE
     Indication: HIV INFECTION
     Dosage: 1 DF DAILY
     Route: 048
     Dates: start: 20100220, end: 20130308
  3. REYATAZ [Concomitant]
     Active Substance: ATAZANAVIR SULFATE
     Indication: HIV INFECTION
     Dosage: 300 MG, DAILY
     Route: 048
     Dates: start: 20100220, end: 20120907
  4. ISENTRESS [Suspect]
     Active Substance: RALTEGRAVIR POTASSIUM
     Indication: HIV INFECTION
     Dosage: 800 MG. DAILY
     Route: 048
     Dates: start: 20120908, end: 20130308

REACTIONS (1)
  - Anal cancer [Fatal]
